FAERS Safety Report 8541713-X (Version None)
Quarter: 2012Q3

REPORT INFORMATION
  Report Type: 
  Country: None (occurrence: None)
  Receive Date: 20120726
  Receipt Date: 20120712
  Transmission Date: 20120928
  Serious: Yes (Other)
  Sender: FDA-Public Use
  Company Number: CHPA2012US015445

PATIENT
  Age: 78 Year
  Sex: Male

DRUGS (2)
  1. BENEFIBER SUGAR FREE [Suspect]
     Dosage: 3 DF, QD [MORE OR LESS AS NEEDED]
     Route: 048
  2. BENEFIBER SUGAR FREE [Suspect]
     Indication: GASTROINTESTINAL DISORDER
     Dosage: 2 DF, QD
     Route: 048

REACTIONS (5)
  - OFF LABEL USE [None]
  - THERAPEUTIC RESPONSE UNEXPECTED [None]
  - INCORRECT DOSE ADMINISTERED [None]
  - DYSPNOEA [None]
  - CARDIAC FAILURE [None]
